FAERS Safety Report 19747453 (Version 1)
Quarter: 2021Q3

REPORT INFORMATION
  Report Type: Spontaneous
  Country: US (occurrence: US)
  Receive Date: 20210826
  Receipt Date: 20210826
  Transmission Date: 20211014
  Serious: No
  Sender: FDA-Public Use
  Company Number: US-ASTRAZENECA-2021A697479

PATIENT
  Age: 61 Year
  Sex: Female

DRUGS (1)
  1. NEXIUM 24HR [Suspect]
     Active Substance: ESOMEPRAZOLE MAGNESIUM
     Indication: DYSPEPSIA
     Dosage: 2 DF, QD
     Route: 048
     Dates: start: 20210809, end: 20210816

REACTIONS (4)
  - Off label use [Unknown]
  - Insomnia [Recovered/Resolved]
  - Drug effect less than expected [Unknown]
  - Oropharyngeal discomfort [Unknown]
